FAERS Safety Report 16979375 (Version 1)
Quarter: 2019Q4

REPORT INFORMATION
  Report Type: Spontaneous
  Country: BR (occurrence: BR)
  Receive Date: 20191031
  Receipt Date: 20191031
  Transmission Date: 20200122
  Serious: Yes (Other)
  Sender: FDA-Public Use
  Company Number: BR-JNJFOC-20191038067

PATIENT
  Sex: Female

DRUGS (11)
  1. TOPIRAMATE. [Suspect]
     Active Substance: TOPIRAMATE
     Indication: SCHIZOPHRENIA
     Dosage: 50 MG 1 TABLET AT 9H AND 1 TABLET AT 16H
     Route: 048
  2. RIVOTRIL [Concomitant]
     Active Substance: CLONAZEPAM
     Dosage: 2 MG ORAL 1 TABLET AT 9
     Route: 048
  3. NEOSALDINA                         /00631701/ [Concomitant]
     Dosage: 1 TABLET ORAL IF NECESSARY
     Route: 048
  4. INVEGA SUSTENNA [Concomitant]
     Active Substance: PALIPERIDONE PALMITATE
     Indication: SCHIZOPHRENIA
     Dosage: 1 VIAL EVERY 20 DAYS
     Route: 030
  5. FLUVOXAMINE [Concomitant]
     Active Substance: FLUVOXAMINE
     Dosage: 50 MG 2 TABLETS AT NIGHT
     Route: 048
  6. TOPIRAMATE. [Suspect]
     Active Substance: TOPIRAMATE
     Dosage: 50 MG 1 TABLET AT 9 H AND 1 TABLET AT 16 H
     Route: 048
  7. OMEPRAZOLE. [Concomitant]
     Active Substance: OMEPRAZOLE
     Dosage: 20 MG 2 TABLETS FASTED
     Route: 048
  8. DRAMAMINE [Concomitant]
     Active Substance: DIMENHYDRINATE
     Dosage: B6 30 DROPS ORAL IF NEEDED
     Route: 048
  9. PREGABALIN. [Concomitant]
     Active Substance: PREGABALIN
  10. GEODON [Concomitant]
     Active Substance: ZIPRASIDONE HYDROCHLORIDE\ZIPRASIDONE MESYLATE
     Dosage: GEODON 80 MG 2 TABLETS ORAL AT NIGHT
     Route: 048
  11. PAROXETINE. [Concomitant]
     Active Substance: PAROXETINE
     Dosage: 20 MG 1 CP ORAL AT 9 HRS,
     Route: 048

REACTIONS (4)
  - Off label use [Unknown]
  - Psychotic symptom [Not Recovered/Not Resolved]
  - Suicidal ideation [Not Recovered/Not Resolved]
  - Product use in unapproved indication [Unknown]
